FAERS Safety Report 23592791 (Version 1)
Quarter: 2024Q1

REPORT INFORMATION
  Report Type: Spontaneous
  Country: DK (occurrence: DK)
  Receive Date: 20240304
  Receipt Date: 20240304
  Transmission Date: 20240409
  Serious: Yes (Other)
  Sender: FDA-Public Use
  Company Number: None

PATIENT
  Age: 16 Year
  Sex: Female
  Weight: 43.4 kg

DRUGS (6)
  1. ACLASTA [Suspect]
     Active Substance: ZOLEDRONIC ACID
     Dosage: 1 MG
     Route: 042
     Dates: start: 20230719
  2. ACLASTA [Suspect]
     Active Substance: ZOLEDRONIC ACID
     Indication: Osteonecrosis
     Dosage: 1.1 MG
     Route: 042
     Dates: start: 20221116
  3. ACLASTA [Suspect]
     Active Substance: ZOLEDRONIC ACID
     Dosage: 1.1 MG
     Route: 042
     Dates: start: 20230208
  4. PROLIA [Suspect]
     Active Substance: DENOSUMAB
     Indication: Osteonecrosis
     Dosage: 40 MG
     Route: 058
     Dates: start: 20221026
  5. PROLIA [Suspect]
     Active Substance: DENOSUMAB
     Dosage: 40 MG
     Route: 058
     Dates: start: 20230426
  6. PROLIA [Suspect]
     Active Substance: DENOSUMAB
     Dosage: 42 MG
     Route: 058
     Dates: start: 20231011

REACTIONS (2)
  - Bone fragmentation [Not Recovered/Not Resolved]
  - Osteonecrosis [Unknown]

NARRATIVE: CASE EVENT DATE: 20230101
